FAERS Safety Report 17909732 (Version 2)
Quarter: 2020Q3

REPORT INFORMATION
  Report Type: Spontaneous
  Country: US (occurrence: US)
  Receive Date: 20200617
  Receipt Date: 20200701
  Transmission Date: 20201103
  Serious: Yes (Death, Other)
  Sender: FDA-Public Use
  Company Number: US-GILEAD-2020-0472780

PATIENT
  Age: 55 Year
  Sex: Female
  Weight: 50 kg

DRUGS (23)
  1. ASCORBIC ACID. [Concomitant]
     Active Substance: ASCORBIC ACID
  2. HEPARIN [Concomitant]
     Active Substance: HEPARIN SODIUM
  3. TOCILIZUMAB. [Concomitant]
     Active Substance: TOCILIZUMAB
  4. ATORVASTATIN [Concomitant]
     Active Substance: ATORVASTATIN
  5. REMDESIVIR. [Suspect]
     Active Substance: REMDESIVIR
     Dosage: 100 MG, QD
     Route: 042
     Dates: start: 20200609, end: 20200610
  6. ALBUTEROL [SALBUTAMOL] [Concomitant]
     Active Substance: ALBUTEROL
  7. NOREPINEPHRINE. [Concomitant]
     Active Substance: NOREPINEPHRINE
  8. PIPERACILLIN/TAZOBACTAM [Concomitant]
     Active Substance: PIPERACILLIN SODIUM\TAZOBACTAM SODIUM
  9. CHOLECALCIFEROL [Concomitant]
     Active Substance: CHOLECALCIFEROL
  10. FAMOTIDINE. [Concomitant]
     Active Substance: FAMOTIDINE
  11. METHYLPREDNISOLONE. [Concomitant]
     Active Substance: METHYLPREDNISOLONE
  12. FENTANYL. [Concomitant]
     Active Substance: FENTANYL
  13. MIDAZOLAM. [Concomitant]
     Active Substance: MIDAZOLAM
  14. PROPOFOL. [Concomitant]
     Active Substance: PROPOFOL
  15. SITAGLIPTIN [Concomitant]
     Active Substance: SITAGLIPTIN
  16. INSULIN ASPART [Concomitant]
     Active Substance: INSULIN ASPART
  17. COLCHICINE. [Suspect]
     Active Substance: COLCHICINE
     Indication: PRODUCT USED FOR UNKNOWN INDICATION
     Dosage: 0.6 MG
     Route: 048
     Dates: start: 20200604, end: 20200614
  18. REMDESIVIR. [Suspect]
     Active Substance: REMDESIVIR
     Indication: COVID-19
     Dosage: 200 MG, QD
     Route: 042
     Dates: start: 20200608, end: 20200608
  19. CISATRACURIUM. [Concomitant]
     Active Substance: CISATRACURIUM
  20. POTASSIUM CHLORIDE. [Concomitant]
     Active Substance: POTASSIUM CHLORIDE
  21. CHLORHEXIDINE [Concomitant]
     Active Substance: CHLORHEXIDINE
  22. LEVEMIR [Concomitant]
     Active Substance: INSULIN DETEMIR
  23. ZINC SULFATE. [Concomitant]
     Active Substance: ZINC SULFATE

REACTIONS (2)
  - Blood creatinine increased [Not Recovered/Not Resolved]
  - Death [Fatal]

NARRATIVE: CASE EVENT DATE: 20200610
